FAERS Safety Report 17596983 (Version 15)
Quarter: 2024Q2

REPORT INFORMATION
  Report Type: Report from Study
  Country: CA (occurrence: None)
  Receive Date: 20200330
  Receipt Date: 20240524
  Transmission Date: 20240716
  Serious: Yes (Other)
  Sender: FDA-Public Use
  Company Number: CA-ORION CORPORATION ORION PHARMA-TREX2020-1566

PATIENT
  Age: 66 Year
  Sex: Female
  Weight: 74 kg

DRUGS (83)
  1. METHOTREXATE [Suspect]
     Active Substance: METHOTREXATE
     Indication: Product used for unknown indication
  2. ACTEMRA [Suspect]
     Active Substance: TOCILIZUMAB
     Indication: Rheumatoid arthritis
     Dosage: CYCLIC
  3. ACTEMRA [Suspect]
     Active Substance: TOCILIZUMAB
  4. ACTEMRA [Suspect]
     Active Substance: TOCILIZUMAB
     Dosage: CYCLIC
  5. ACTEMRA [Suspect]
     Active Substance: TOCILIZUMAB
     Dosage: CYCLIC
  6. ACTEMRA [Suspect]
     Active Substance: TOCILIZUMAB
     Dosage: CYCLICAL
  7. ACTEMRA [Suspect]
     Active Substance: TOCILIZUMAB
     Dosage: CYCLICAL
  8. ACTEMRA [Suspect]
     Active Substance: TOCILIZUMAB
  9. ACTEMRA [Suspect]
     Active Substance: TOCILIZUMAB
  10. ACTEMRA [Suspect]
     Active Substance: TOCILIZUMAB
     Dosage: CYCLICAL
  11. ACTEMRA [Suspect]
     Active Substance: TOCILIZUMAB
     Dosage: CYCLICAL
  12. ACTEMRA [Suspect]
     Active Substance: TOCILIZUMAB
     Dosage: CYCLICAL
  13. ACTEMRA [Suspect]
     Active Substance: TOCILIZUMAB
     Dosage: CYCLICAL
  14. ACTEMRA [Suspect]
     Active Substance: TOCILIZUMAB
     Dosage: CYCLICAL
  15. ACTEMRA [Suspect]
     Active Substance: TOCILIZUMAB
     Dosage: CYCLICAL
  16. ACTEMRA [Suspect]
     Active Substance: TOCILIZUMAB
     Dosage: CYCLICAL
  17. ACTEMRA [Suspect]
     Active Substance: TOCILIZUMAB
     Dosage: CYCLICAL
  18. ACTEMRA [Suspect]
     Active Substance: TOCILIZUMAB
     Dosage: CYCLICAL
  19. ACTEMRA [Suspect]
     Active Substance: TOCILIZUMAB
     Dosage: CYCLICAL
  20. ACTEMRA [Suspect]
     Active Substance: TOCILIZUMAB
  21. ACTEMRA [Suspect]
     Active Substance: TOCILIZUMAB
  22. ACTEMRA [Suspect]
     Active Substance: TOCILIZUMAB
  23. ACTEMRA [Suspect]
     Active Substance: TOCILIZUMAB
  24. ACTEMRA [Suspect]
     Active Substance: TOCILIZUMAB
  25. ACTEMRA [Suspect]
     Active Substance: TOCILIZUMAB
  26. ACTEMRA [Suspect]
     Active Substance: TOCILIZUMAB
  27. ACTEMRA [Suspect]
     Active Substance: TOCILIZUMAB
  28. ACTEMRA [Suspect]
     Active Substance: TOCILIZUMAB
  29. ACTEMRA [Suspect]
     Active Substance: TOCILIZUMAB
  30. ACTEMRA [Suspect]
     Active Substance: TOCILIZUMAB
  31. ACTEMRA [Suspect]
     Active Substance: TOCILIZUMAB
  32. ACTEMRA [Suspect]
     Active Substance: TOCILIZUMAB
  33. ACTEMRA [Suspect]
     Active Substance: TOCILIZUMAB
  34. ACTEMRA [Suspect]
     Active Substance: TOCILIZUMAB
  35. ACTEMRA [Suspect]
     Active Substance: TOCILIZUMAB
  36. ACTEMRA [Suspect]
     Active Substance: TOCILIZUMAB
  37. ACTEMRA [Suspect]
     Active Substance: TOCILIZUMAB
  38. ACTEMRA [Suspect]
     Active Substance: TOCILIZUMAB
  39. ACTEMRA [Suspect]
     Active Substance: TOCILIZUMAB
  40. ACTEMRA [Suspect]
     Active Substance: TOCILIZUMAB
  41. ACTEMRA [Suspect]
     Active Substance: TOCILIZUMAB
  42. ACTEMRA [Suspect]
     Active Substance: TOCILIZUMAB
  43. ACTEMRA [Suspect]
     Active Substance: TOCILIZUMAB
  44. ACTEMRA [Suspect]
     Active Substance: TOCILIZUMAB
  45. ACTEMRA [Suspect]
     Active Substance: TOCILIZUMAB
  46. ACTEMRA [Suspect]
     Active Substance: TOCILIZUMAB
  47. ACTEMRA [Suspect]
     Active Substance: TOCILIZUMAB
  48. ACTEMRA [Suspect]
     Active Substance: TOCILIZUMAB
  49. ACTEMRA [Suspect]
     Active Substance: TOCILIZUMAB
  50. ALENDRONATE SODIUM [Concomitant]
     Active Substance: ALENDRONATE SODIUM
  51. AMITRIPTYLINE [Concomitant]
     Active Substance: AMITRIPTYLINE
  52. AMITRIPTYLINE [Concomitant]
     Active Substance: AMITRIPTYLINE
  53. CELEBREX [Concomitant]
     Active Substance: CELECOXIB
  54. CELEBREX [Concomitant]
     Active Substance: CELECOXIB
  55. CELEBREX [Concomitant]
     Active Substance: CELECOXIB
  56. CLONAZEPAM [Concomitant]
     Active Substance: CLONAZEPAM
  57. CLONAZEPAM [Concomitant]
     Active Substance: CLONAZEPAM
  58. CLONAZEPAM [Concomitant]
     Active Substance: CLONAZEPAM
  59. FOLIC ACID [Concomitant]
     Active Substance: FOLIC ACID
  60. FERROUS SULFATE ANHYDROUS [Concomitant]
     Active Substance: FERROUS SULFATE ANHYDROUS
  61. LORAZEPAM [Concomitant]
     Active Substance: LORAZEPAM
  62. LORAZEPAM [Concomitant]
     Active Substance: LORAZEPAM
  63. PANTOPRAZOLE SODIUM [Concomitant]
     Active Substance: PANTOPRAZOLE SODIUM
  64. PANTOPRAZOLE SODIUM [Concomitant]
     Active Substance: PANTOPRAZOLE SODIUM
  65. PREDNISONE [Concomitant]
     Active Substance: PREDNISONE
  66. QUETIAPINE [Concomitant]
     Active Substance: QUETIAPINE
  67. QUETIAPINE [Concomitant]
     Active Substance: QUETIAPINE
  68. QUETIAPINE [Concomitant]
     Active Substance: QUETIAPINE
  69. TELMISARTAN [Concomitant]
     Active Substance: TELMISARTAN
  70. TELMISARTAN [Concomitant]
     Active Substance: TELMISARTAN
  71. TYLENOL [Concomitant]
     Active Substance: ACETAMINOPHEN
     Indication: Premedication
  72. TYLENOL [Concomitant]
     Active Substance: ACETAMINOPHEN
  73. VENLAFAXINE HYDROCHLORIDE [Concomitant]
     Active Substance: VENLAFAXINE HYDROCHLORIDE
  74. VENLAFAXINE HYDROCHLORIDE [Concomitant]
     Active Substance: VENLAFAXINE HYDROCHLORIDE
  75. ACETAMINOPHEN [Concomitant]
     Active Substance: ACETAMINOPHEN
     Indication: Premedication
  76. ACETAMINOPHEN [Concomitant]
     Active Substance: ACETAMINOPHEN
  77. ADVAIR HFA [Concomitant]
     Active Substance: FLUTICASONE PROPIONATE\SALMETEROL XINAFOATE
  78. TIOTROPIUM BROMIDE MONOHYDRATE [Concomitant]
     Active Substance: TIOTROPIUM BROMIDE MONOHYDRATE
  79. PANTOPRAZOLE SODIUM [Concomitant]
     Active Substance: PANTOPRAZOLE SODIUM
  80. SPIRIVA [Concomitant]
     Active Substance: TIOTROPIUM BROMIDE MONOHYDRATE
  81. PANTOPRAZOLE [Concomitant]
     Active Substance: PANTOPRAZOLE
  82. VENLAFAXINE [Concomitant]
     Active Substance: VENLAFAXINE HYDROCHLORIDE
  83. VENTOLIN [Concomitant]
     Active Substance: ALBUTEROL SULFATE

REACTIONS (34)
  - Pancytopenia [Not Recovered/Not Resolved]
  - Cystitis [Not Recovered/Not Resolved]
  - Malaise [Not Recovered/Not Resolved]
  - Nausea [Not Recovered/Not Resolved]
  - Arthralgia [Not Recovered/Not Resolved]
  - Arthritis [Not Recovered/Not Resolved]
  - Blood pressure diastolic abnormal [Not Recovered/Not Resolved]
  - Blood pressure fluctuation [Not Recovered/Not Resolved]
  - Blood pressure increased [Not Recovered/Not Resolved]
  - Blood pressure systolic increased [Not Recovered/Not Resolved]
  - Disability assessment scale score increased [Not Recovered/Not Resolved]
  - Dyspepsia [Not Recovered/Not Resolved]
  - Ear haemorrhage [Not Recovered/Not Resolved]
  - Erythema [Not Recovered/Not Resolved]
  - Fall [Not Recovered/Not Resolved]
  - Gait inability [Not Recovered/Not Resolved]
  - Head injury [Not Recovered/Not Resolved]
  - Joint stiffness [Not Recovered/Not Resolved]
  - Joint swelling [Not Recovered/Not Resolved]
  - Nail injury [Not Recovered/Not Resolved]
  - Pain [Not Recovered/Not Resolved]
  - Pain in extremity [Not Recovered/Not Resolved]
  - Urinary incontinence [Not Recovered/Not Resolved]
  - Weight decreased [Not Recovered/Not Resolved]
  - Weight increased [Not Recovered/Not Resolved]
  - Wrist fracture [Not Recovered/Not Resolved]
  - Confusional state [Not Recovered/Not Resolved]
  - Dementia [Not Recovered/Not Resolved]
  - Insomnia [Not Recovered/Not Resolved]
  - Oxygen saturation decreased [Not Recovered/Not Resolved]
  - Body temperature increased [Not Recovered/Not Resolved]
  - Blood pressure systolic abnormal [Not Recovered/Not Resolved]
  - Vascular access site extravasation [Not Recovered/Not Resolved]
  - Heart rate decreased [Not Recovered/Not Resolved]
